FAERS Safety Report 9760845 (Version 1)
Quarter: 2013Q4

REPORT INFORMATION
  Report Type: Spontaneous
  Country: US (occurrence: US)
  Receive Date: 20131216
  Receipt Date: 20131216
  Transmission Date: 20140711
  Serious: No
  Sender: FDA-Public Use
  Company Number: US-BIOGENIDEC-2013BI107151

PATIENT
  Age: 52 Year
  Sex: Female

DRUGS (3)
  1. TECFIDERA [Suspect]
     Indication: MULTIPLE SCLEROSIS
     Dates: start: 20131001
  2. VITAMIN D [Concomitant]
  3. FISH OIL [Concomitant]

REACTIONS (5)
  - Paraesthesia [Unknown]
  - Throat irritation [Unknown]
  - Nasopharyngitis [Unknown]
  - Flushing [Unknown]
  - Pruritus [Unknown]
